FAERS Safety Report 8352012-3 (Version None)
Quarter: 2012Q2

REPORT INFORMATION
  Report Type: 
  Country: None (occurrence: None)
  Receive Date: 20120511
  Receipt Date: 20120504
  Transmission Date: 20120825
  Serious: Yes (Hospitalization)
  Sender: FDA-Public Use
  Company Number: US-BAYER-2011-089478

PATIENT
  Age: 28 Year
  Sex: Female
  Weight: 79.365 kg

DRUGS (12)
  1. PREDNISONE [Concomitant]
     Indication: PLEURISY
  2. DROSPIRENONE AND ETHINYL ESTRADIOL [Suspect]
     Dosage: UNK
     Route: 048
     Dates: start: 20081101, end: 20090701
  3. DROSPIRENONE AND ETHINYL ESTRADIOL [Suspect]
     Indication: CONTRACEPTION
     Dosage: UNK
     Route: 048
     Dates: start: 20050401, end: 20060101
  4. VICODIN [Concomitant]
  5. YASMIN [Suspect]
     Dosage: UNK
     Route: 048
     Dates: start: 20081101, end: 20090701
  6. NAPROSYN [Concomitant]
  7. PERCOCET [Concomitant]
  8. ANTACIDS [Concomitant]
  9. PREDNISONE [Concomitant]
     Indication: SYNOVITIS
  10. YASMIN [Suspect]
     Indication: CONTRACEPTION
     Dosage: UNK
     Route: 048
     Dates: start: 20050401, end: 20060101
  11. ZITHROMAX [Concomitant]
  12. METHOTREXATE [Concomitant]
     Dosage: UNK
     Dates: start: 20090214

REACTIONS (8)
  - PAIN [None]
  - DYSPNOEA [None]
  - ATELECTASIS [None]
  - PNEUMOTHORAX [None]
  - PAINFUL RESPIRATION [None]
  - CHEST PAIN [None]
  - MENTAL DISORDER [None]
  - PULMONARY EMBOLISM [None]
